FAERS Safety Report 18788868 (Version 1)
Quarter: 2021Q1

REPORT INFORMATION
  Report Type: Spontaneous
  Country: US (occurrence: US)
  Receive Date: 20210126
  Receipt Date: 20210126
  Transmission Date: 20210419
  Serious: No
  Sender: FDA-Public Use
  Company Number: US-ASTRAZENECA-2021A002592

PATIENT
  Sex: Male
  Weight: 72.6 kg

DRUGS (3)
  1. SYMBICORT [Suspect]
     Active Substance: BUDESONIDE\FORMOTEROL FUMARATE DIHYDRATE
     Indication: ASTHMA
     Dosage: 160/4.5 UG, TWO TIMES A DAY
     Route: 055
     Dates: start: 2011
  2. ALOPURINOL [Concomitant]
     Active Substance: ALLOPURINOL
     Indication: GOUT
  3. LOSARTAN. [Concomitant]
     Active Substance: LOSARTAN
     Indication: BLOOD PRESSURE ABNORMAL

REACTIONS (2)
  - Dysphonia [Not Recovered/Not Resolved]
  - Feeling abnormal [Not Recovered/Not Resolved]
